FAERS Safety Report 9440845 (Version 3)
Quarter: 2013Q4

REPORT INFORMATION
  Report Type: Spontaneous
  Country: FR (occurrence: FR)
  Receive Date: 20130805
  Receipt Date: 20131108
  Transmission Date: 20140711
  Serious: Yes (Hospitalization)
  Sender: FDA-Public Use
  Company Number: FR-SANOFI-AVENTIS-2013SA077183

PATIENT
  Age: 73 Year
  Sex: Male

DRUGS (15)
  1. LASILIX [Suspect]
     Indication: HYPERTENSION
     Dosage: DOSE- DOSE INCREASED ON UNSPECIFIED DATE
     Route: 048
     Dates: start: 20130626
  2. LASILIX [Suspect]
     Indication: HYPERTENSION
     Route: 048
  3. RIFADINE [Suspect]
     Indication: STAPHYLOCOCCAL INFECTION
     Route: 048
     Dates: start: 20130628, end: 20130708
  4. CORDARONE [Suspect]
     Indication: ATRIAL FIBRILLATION
     Dosage: FREQUENCY- 5 TIMES PER WEEK
     Route: 048
  5. LEVOFLOXACIN [Suspect]
     Indication: INFECTION
     Route: 048
     Dates: start: 20130704
  6. GENTAMICIN ^PANPHARMA^ [Suspect]
     Indication: INFECTION
     Route: 058
     Dates: start: 20130704, end: 20130708
  7. LEVOTHYROX [Suspect]
     Indication: HYPOTHYROIDISM
     Route: 048
  8. PREVISCAN [Suspect]
     Indication: PROPHYLAXIS
     Route: 048
     Dates: end: 20130708
  9. CARDENSIEL [Suspect]
     Indication: HYPERTENSION
     Route: 048
  10. ZYLORIC [Suspect]
     Indication: HYPERURICAEMIA
     Route: 048
  11. SERETIDE DISKUS [Suspect]
     Indication: CHRONIC OBSTRUCTIVE PULMONARY DISEASE
     Dosage: FORM- POWDER FOR INHALATION
     Route: 055
  12. EUPANTOL [Suspect]
     Indication: ULCER
     Route: 048
  13. BRICANYL [Suspect]
     Indication: PRODUCT USED FOR UNKNOWN INDICATION
     Route: 065
     Dates: start: 20130626
  14. ATROVENT [Suspect]
     Indication: PRODUCT USED FOR UNKNOWN INDICATION
     Route: 065
     Dates: start: 20130626
  15. OFLOXACIN [Concomitant]
     Indication: STAPHYLOCOCCAL INFECTION
     Dates: start: 20130628, end: 20130704

REACTIONS (2)
  - Hepatitis [Recovered/Resolved]
  - Transaminases increased [Recovered/Resolved]
